FAERS Safety Report 10371311 (Version 2)
Quarter: 2014Q3

REPORT INFORMATION
  Report Type: Spontaneous
  Country: JP (occurrence: JP)
  Receive Date: 20140808
  Receipt Date: 20140903
  Transmission Date: 20150326
  Serious: Yes (Hospitalization)
  Sender: FDA-Public Use
  Company Number: JP-AMGEN-JPNSP2014059142

PATIENT
  Age: 76 Year
  Sex: Female
  Weight: 50 kg

DRUGS (4)
  1. MEROPEN                            /01250501/ [Concomitant]
     Active Substance: MEROPENEM
     Dosage: 1 G, TID
     Route: 065
     Dates: start: 20140612, end: 20140614
  2. SULBACILLIN [Suspect]
     Active Substance: AMPICILLIN SODIUM\SULBACTAM SODIUM
     Indication: PRODUCT USED FOR UNKNOWN INDICATION
     Dosage: 3000 MG, BID
     Route: 065
     Dates: start: 20140609, end: 20140611
  3. VANCOMYCIN [Concomitant]
     Active Substance: VANCOMYCIN
     Dosage: 500 MG, BID
     Route: 065
     Dates: start: 20140612, end: 20140614
  4. GRAN [Suspect]
     Active Substance: FILGRASTIM
     Indication: NEUTROPENIA
     Dosage: 75 MUG, QD
     Route: 058
     Dates: start: 20140603, end: 20140605

REACTIONS (2)
  - Hepatic enzyme increased [Recovered/Resolved]
  - Pyrexia [Recovered/Resolved]

NARRATIVE: CASE EVENT DATE: 20140607
